FAERS Safety Report 24347919 (Version 1)
Quarter: 2024Q3

REPORT INFORMATION
  Report Type: Report from Study
  Country: US (occurrence: US)
  Receive Date: 20240923
  Receipt Date: 20240923
  Transmission Date: 20241017
  Serious: Yes (Hospitalization, Other)
  Sender: ABBVIE
  Company Number: US-ABBVIE-5930562

PATIENT
  Sex: Male

DRUGS (2)
  1. VENCLEXTA [Suspect]
     Active Substance: VENETOCLAX
     Indication: Acute lymphocytic leukaemia
     Dosage: END DATE 2024
     Route: 048
     Dates: start: 202408
  2. VENCLEXTA [Suspect]
     Active Substance: VENETOCLAX
     Indication: Acute lymphocytic leukaemia
     Route: 048
     Dates: start: 202409

REACTIONS (1)
  - Chemotherapy [Unknown]

NARRATIVE: CASE EVENT DATE: 20240101
